FAERS Safety Report 15233076 (Version 1)
Quarter: 2018Q3

REPORT INFORMATION
  Report Type: Spontaneous
  Country: US (occurrence: US)
  Receive Date: 20180709
  Receipt Date: 20180709
  Transmission Date: 20181010
  Serious: Yes (Hospitalization)
  Sender: FDA-Public Use
  Company Number: None

PATIENT
  Age: 45 Year
  Sex: Male

DRUGS (5)
  1. LYRICA [Concomitant]
     Active Substance: PREGABALIN
  2. ALEVE [Concomitant]
     Active Substance: NAPROXEN SODIUM
  3. OXYCODONE [Concomitant]
     Active Substance: OXYCODONE
  4. ADVIL [Concomitant]
     Active Substance: IBUPROFEN
  5. REBIF [Suspect]
     Active Substance: INTERFERON BETA-1A
     Indication: MULTIPLE SCLEROSIS
     Dosage: ?          OTHER FREQUENCY:3 TIMES WEEKLY;?
     Route: 058
     Dates: start: 20160405

REACTIONS (1)
  - Gallbladder operation [None]

NARRATIVE: CASE EVENT DATE: 20180625
